FAERS Safety Report 6255532-0 (Version None)
Quarter: 2009Q3

REPORT INFORMATION
  Report Type: 
  Country: None (occurrence: None)
  Receive Date: 20090702
  Receipt Date: 20090621
  Transmission Date: 20100115
  Serious: Yes (Other)
  Sender: FDA-Public Use
  Company Number: QA-GENENTECH-285629

PATIENT
  Age: 66 Year
  Sex: Male

DRUGS (6)
  1. MABTHERA [Suspect]
     Indication: B-CELL LYMPHOMA
     Dosage: 700 MG, Q21D
     Route: 042
  2. FLUDARABINE PHOSPHATE [Suspect]
     Indication: DRUG USE FOR UNKNOWN INDICATION
     Route: 065
  3. CYCLOPHOSPHAMIDE [Suspect]
     Indication: DRUG USE FOR UNKNOWN INDICATION
     Route: 065
  4. GANCICLOVIR [Concomitant]
     Indication: DRUG USE FOR UNKNOWN INDICATION
  5. FOSCARNET [Concomitant]
     Indication: DRUG USE FOR UNKNOWN INDICATION
  6. NEUPOGEN [Concomitant]
     Indication: DRUG USE FOR UNKNOWN INDICATION

REACTIONS (1)
  - LEUKOENCEPHALOPATHY [None]
